FAERS Safety Report 9300313 (Version 2)
Quarter: 2013Q1

REPORT INFORMATION
  Report Type: Spontaneous
  Country: US (occurrence: None)
  Receive Date: 20121126
  Receipt Date: 20121203
  Transmission Date: 20140127
  Serious: Yes (Hospitalization)
  Sender: FDA-Public Use
  Company Number: GAM-248-12-US

PATIENT
  Age: 65 Year
  Sex: Female

DRUGS (27)
  1. OCTAGAM [Suspect]
     Indication: IMMUNODEFICIENCY COMMON VARIABLE
     Dosage: 60 GM Q3.5 WEEKS
     Dates: start: 20120927
  2. SINGULAIR [Concomitant]
  3. ALVESCO (CICLESONIDE) [Concomitant]
  4. MAXAIR (PIRBUTEROL) [Concomitant]
  5. XOPENEX (LEVALBUTEROL) [Concomitant]
  6. LEVEMIR (INSULIN) [Concomitant]
  7. NITROGLYCERIN [Concomitant]
  8. AMLODIPINE [Concomitant]
  9. PLAVIX (CLOPIDOGREL) [Concomitant]
  10. MULTIVITAMINS [Concomitant]
  11. ACETAMINOPHEN [Concomitant]
  12. ULTRACET (TRAMADOL, ACETAMINOPHEN) [Concomitant]
  13. SYSTANE EYE (CARBOXYMETHYLCELLULOSE) [Concomitant]
  14. OMEGA-3 FATTY ACID [Concomitant]
  15. XOLAIR (OMALIZUMAB) [Concomitant]
  16. GLUMETZA (METFORMIN) [Concomitant]
  17. HYDROCHLOROTHIAZIDE [Concomitant]
  18. NASACORT (TRIAMCINOLONE) [Concomitant]
  19. POTASSIUM [Concomitant]
  20. FERROUS SULPHATE [Concomitant]
  21. DIPHENHYDRAMINE [Concomitant]
  22. NASALCROM (CROMOGLICIC ACID) [Concomitant]
  23. RESTASIS CYCLOSPORINE) [Concomitant]
  24. MAGNESIUM [Concomitant]
  25. NOVOLOG (INSULIN) [Concomitant]
  26. XYZAL (LEVOCETIRIZINE) [Concomitant]
  27. VITAMIN D3 [Concomitant]

REACTIONS (5)
  - Chills [None]
  - Tremor [None]
  - Pyrexia [None]
  - Hyperventilation [None]
  - Amnesia [None]
